FAERS Safety Report 13120674 (Version 1)
Quarter: 2017Q1

REPORT INFORMATION
  Report Type: Spontaneous
  Country: GB (occurrence: GB)
  Receive Date: 20170117
  Receipt Date: 20170117
  Transmission Date: 20170428
  Serious: Yes (Other)
  Sender: FDA-Public Use
  Company Number: GB-CONCORDIA PHARMACEUTICALS INC.-GSH201701-000431

PATIENT
  Age: 79 Year
  Sex: Male
  Weight: 84 kg

DRUGS (10)
  1. LOSARTAN. [Concomitant]
     Active Substance: LOSARTAN
     Dates: start: 20161123
  2. TAMSULOSIN HYDROCHLORIDE. [Concomitant]
     Active Substance: TAMSULOSIN HYDROCHLORIDE
     Dates: start: 20150106
  3. FINASTERIDE. [Concomitant]
     Active Substance: FINASTERIDE
     Dates: start: 20150106
  4. SALBUTAMOL [Concomitant]
     Active Substance: ALBUTEROL
     Route: 055
     Dates: start: 20150106
  5. TIOTROPIUM [Concomitant]
     Active Substance: TIOTROPIUM
     Route: 055
     Dates: start: 20150106
  6. DIGOXIN. [Suspect]
     Active Substance: DIGOXIN
     Dates: start: 20161220
  7. DUORESP SPIROMAX [Concomitant]
     Active Substance: BUDESONIDE\FORMOTEROL
     Dates: start: 20160906
  8. FUROSEMIDE. [Concomitant]
     Active Substance: FUROSEMIDE
     Dosage: EACH MORNING
     Dates: start: 20160107
  9. TADALAFIL [Concomitant]
     Active Substance: TADALAFIL
     Dosage: USE AS DIRECTED
     Dates: start: 20150106
  10. CODEINE PHOSPHATE [Concomitant]
     Active Substance: CODEINE PHOSPHATE
     Dates: start: 20150106

REACTIONS (1)
  - Cough [Recovered/Resolved]

NARRATIVE: CASE EVENT DATE: 20161220
